FAERS Safety Report 7474905-1 (Version None)
Quarter: 2011Q2

REPORT INFORMATION
  Report Type: 
  Country: None (occurrence: None)
  Receive Date: 20110505
  Receipt Date: 20110414
  Transmission Date: 20111010
  Serious: Yes (Other)
  Sender: FDA-Public Use
  Company Number: TOR 2011-0022

PATIENT
  Age: 59 Year
  Sex: Female

DRUGS (1)
  1. TOREMIFENE (TOREMIFENE) [Suspect]
     Indication: BREAST CANCER
     Dosage: CUMULATIVE DOSE: 55 G

REACTIONS (1)
  - MACULAR HOLE [None]
